FAERS Safety Report 5335548-9 (Version None)
Quarter: 2007Q2

REPORT INFORMATION
  Report Type: 
  Country: None (occurrence: None)
  Receive Date: 20070522
  Receipt Date: 20070516
  Transmission Date: 20071010
  Serious: Yes (Hospitalization)
  Sender: FDA-Public Use
  Company Number: SPV1-2007-02826

PATIENT
  Age: 75 Year
  Sex: Male
  Weight: 106.7 kg

DRUGS (18)
  1. FOSRENOL [Suspect]
     Dosage: SEE IMAGE
     Route: 048
     Dates: start: 20060101, end: 20070511
  2. FOSRENOL [Suspect]
     Dosage: SEE IMAGE
     Route: 048
     Dates: start: 20070511
  3. ISOSORBIDE (ISOSORBIDE DINITRATE) [Concomitant]
  4. ASPIRIN [Concomitant]
  5. PLAVIX  101220701/ (CLOPIDOGREL) [Concomitant]
  6. ALLOPURINOL [Concomitant]
  7. GABAPENTIN [Concomitant]
  8. DARVOCET-N 100 [Concomitant]
  9. ALBUTEROL  /00139501/ (SALBUTAMOL) [Concomitant]
  10. ATROVENT (IRATROPIUM BROMIDE) [Concomitant]
  11. FERROUS SULFATE TAB [Concomitant]
  12. LORAZEPAM [Concomitant]
  13. VITAMIN D  /00107901/ ( VITAMIN D) [Concomitant]
  14. EPOGEN [Concomitant]
  15. HEPARIN [Concomitant]
  16. LEVOTHYROXINE SODIUM [Concomitant]
  17. STPP; SPFTMER [Concomitant]
  18. GL COLAX [Concomitant]

REACTIONS (5)
  - BLOOD PHOSPHORUS INCREASED [None]
  - CHEST PAIN [None]
  - CONSTIPATION [None]
  - GASTROOESOPHAGEAL REFLUX DISEASE [None]
  - PRURITUS [None]
